FAERS Safety Report 8066717-5 (Version None)
Quarter: 2012Q1

REPORT INFORMATION
  Report Type: 
  Country: None (occurrence: None)
  Receive Date: 20120124
  Receipt Date: 20120111
  Transmission Date: 20120608
  Serious: Yes (Other)
  Sender: FDA-Public Use
  Company Number: US-PFIZER INC-2012014221

PATIENT

DRUGS (1)
  1. IBUPROFEN [Suspect]
     Dosage: 200 MG, UNK
     Route: 048

REACTIONS (1)
  - GASTRIC HAEMORRHAGE [None]
